FAERS Safety Report 20912160 (Version 1)
Quarter: 2022Q2

REPORT INFORMATION
  Report Type: Spontaneous
  Country: CN (occurrence: None)
  Receive Date: 20220603
  Receipt Date: 20220603
  Transmission Date: 20220720
  Serious: Yes (Other)
  Sender: FDA-Public Use
  Company Number: 2022A204048

PATIENT
  Age: 81 Year
  Sex: Male
  Weight: 59 kg

DRUGS (1)
  1. IMFINZI [Suspect]
     Active Substance: DURVALUMAB
     Indication: Small cell lung cancer extensive stage
     Dosage: 1000MG/CYCLE
     Route: 042
     Dates: start: 20220224

REACTIONS (6)
  - Myocardial infarction [Unknown]
  - Renal impairment [Unknown]
  - Confusional state [Unknown]
  - Loss of consciousness [Unknown]
  - Gait inability [Unknown]
  - Vomiting [Unknown]
